FAERS Safety Report 4489003-9 (Version None)
Quarter: 2004Q4

REPORT INFORMATION
  Report Type: 
  Country: None (occurrence: None)
  Receive Date: 20041029
  Receipt Date: 20041018
  Transmission Date: 20050328
  Serious: Yes (Disabling)
  Sender: FDA-Public Use
  Company Number: NO-JNJFOC-20041005420

PATIENT
  Sex: Female

DRUGS (5)
  1. REMICADE [Suspect]
     Route: 042
  2. MESASAL [Concomitant]
     Indication: CROHN'S DISEASE
  3. SYMBICORT [Concomitant]
  4. SYMBICORT [Concomitant]
     Dosage: 2 INHALATIONS DAILY
  5. DIOVAN [Concomitant]

REACTIONS (4)
  - CONDITION AGGRAVATED [None]
  - DIFFICULTY IN WALKING [None]
  - PAIN [None]
  - PSORIASIS [None]
